FAERS Safety Report 8252402-3 (Version None)
Quarter: 2012Q2

REPORT INFORMATION
  Report Type: 
  Country: None (occurrence: None)
  Receive Date: 20120402
  Receipt Date: 20110803
  Transmission Date: 20120825
  Serious: Yes (Hospitalization)
  Sender: FDA-Public Use
  Company Number: US-ABBOTT-11P-163-0835166-00

PATIENT
  Sex: Male
  Weight: 90.8 kg

DRUGS (2)
  1. ANDROGEL [Suspect]
     Indication: HYPOGONADISM
  2. ANDROGEL [Suspect]
     Indication: HORMONE REPLACEMENT THERAPY
     Dates: start: 20050714, end: 20110627

REACTIONS (1)
  - DEEP VEIN THROMBOSIS [None]
